FAERS Safety Report 6482157-4 (Version None)
Quarter: 2009Q4

REPORT INFORMATION
  Report Type: 
  Country: None (occurrence: None)
  Receive Date: 20091208
  Receipt Date: 20090406
  Transmission Date: 20100525
  Serious: No
  Sender: FDA-Public Use
  Company Number: US-AMGEN-KDL341732

PATIENT
  Sex: Female
  Weight: 66.3 kg

DRUGS (1)
  1. ENBREL [Suspect]
     Indication: RHEUMATOID ARTHRITIS
     Route: 058
     Dates: start: 20090320

REACTIONS (5)
  - ABDOMINAL PAIN [None]
  - ARTHROPATHY [None]
  - BOWEL MOVEMENT IRREGULARITY [None]
  - GAIT DISTURBANCE [None]
  - VIRAL INFECTION [None]
